FAERS Safety Report 26141855 (Version 1)
Quarter: 2025Q4

REPORT INFORMATION
  Report Type: Spontaneous
  Country: CN (occurrence: CN)
  Receive Date: 20251210
  Receipt Date: 20251210
  Transmission Date: 20260117
  Serious: Yes (Hospitalization, Other)
  Sender: NOVO NORDISK
  Company Number: CN-NOVOPROD-1580470

PATIENT
  Sex: Male
  Weight: 85 kg

DRUGS (2)
  1. NOVOLIN R [Suspect]
     Active Substance: INSULIN HUMAN
     Dosage: RESUMED USING NOVOLIN 30R
  2. NOVOLIN R [Suspect]
     Active Substance: INSULIN HUMAN
     Indication: Type 2 diabetes mellitus
     Dosage: 50 U IN THE MORNING, SOMETIMES AN ADDITIONAL 15 U AT LUNCH DEPENDING ON DIET, AND 35?40 U AT NIGHT
     Dates: start: 2002, end: 202505

REACTIONS (4)
  - Sinusitis [Unknown]
  - Blood glucose abnormal [Unknown]
  - Blood glucose increased [Unknown]
  - Therapeutic response decreased [Unknown]

NARRATIVE: CASE EVENT DATE: 20230101
